FAERS Safety Report 4348645-1 (Version None)
Quarter: 2004Q2

REPORT INFORMATION
  Report Type: 
  Country: None (occurrence: None)
  Receive Date: 20040423
  Receipt Date: 20040415
  Transmission Date: 20050107
  Serious: Yes (Other)
  Sender: FDA-Public Use
  Company Number: JP-JNJFOC-20040306000

PATIENT
  Age: 48 Year
  Sex: Male

DRUGS (4)
  1. ORTHOCLONE OKT3 [Suspect]
     Indication: KIDNEY TRANSPLANT REJECTION
     Dosage: INTRAVENOUS
     Route: 042
  2. CYCLOSPORINE [Concomitant]
  3. ANABOLIC STEROIDS AND PREPARATIONS (ANABOLIC STEROIDS) [Concomitant]
  4. NITROGLYCERIN [Concomitant]

REACTIONS (3)
  - C-REACTIVE PROTEIN INCREASED [None]
  - PLEURAL EFFUSION [None]
  - PYREXIA [None]
